FAERS Safety Report 8087866-1 (Version None)
Quarter: 2012Q1

REPORT INFORMATION
  Report Type: 
  Country: None (occurrence: None)
  Receive Date: 20120128
  Receipt Date: 20110504
  Transmission Date: 20120608
  Serious: No
  Sender: FDA-Public Use
  Company Number: US-ABBOTT-11P-163-0723179-00

PATIENT
  Sex: Male
  Weight: 72.64 kg

DRUGS (4)
  1. VITAMIN B-12 [Concomitant]
     Indication: VITAMIN SUPPLEMENTATION
  2. HUMIRA [Suspect]
     Indication: CROHN'S DISEASE
     Dosage: STARTER KIT: 4 IN 1 DAYS
     Route: 058
     Dates: start: 20110401, end: 20110401
  3. HUMIRA [Suspect]
     Route: 058
     Dates: start: 20110415, end: 20110415
  4. HUMIRA [Suspect]
     Route: 058
     Dates: start: 20110429

REACTIONS (1)
  - FATIGUE [None]
